FAERS Safety Report 20338173 (Version 7)
Quarter: 2022Q4

REPORT INFORMATION
  Report Type: Report from Study
  Country: US (occurrence: None)
  Receive Date: 20220115
  Receipt Date: 20221019
  Transmission Date: 20230113
  Serious: Yes (Other)
  Sender: FDA-Public Use
  Company Number: US-ROCHE-2814154

PATIENT
  Age: 65 Year
  Sex: Male
  Weight: 95 kg

DRUGS (20)
  1. RANIBIZUMAB [Suspect]
     Active Substance: RANIBIZUMAB
     Indication: Diabetic retinal oedema
     Dosage: DRUG DOSE FIRST ADMINISTERED IS 10 MG/ML, START DATE OF MOST RECENT DOSE OF STUDY DRUG PRIOR TO AE/S
     Route: 050
     Dates: start: 20200820
  2. RANIBIZUMAB [Suspect]
     Active Substance: RANIBIZUMAB
  3. RANIBIZUMAB [Suspect]
     Active Substance: RANIBIZUMAB
  4. RANIBIZUMAB [Suspect]
     Active Substance: RANIBIZUMAB
  5. RANIBIZUMAB [Suspect]
     Active Substance: RANIBIZUMAB
  6. RANIBIZUMAB [Suspect]
     Active Substance: RANIBIZUMAB
     Route: 050
     Dates: start: 20201112
  7. RANIBIZUMAB [Suspect]
     Active Substance: RANIBIZUMAB
  8. RANIBIZUMAB [Suspect]
     Active Substance: RANIBIZUMAB
  9. RANIBIZUMAB [Suspect]
     Active Substance: RANIBIZUMAB
  10. RANIBIZUMAB [Suspect]
     Active Substance: RANIBIZUMAB
  11. RANIBIZUMAB [Concomitant]
     Active Substance: RANIBIZUMAB
     Dosage: START DATE OF MOST RECENT DOSE OF STUDY DRUG PRIOR TO AE/SAE: 14/APR/2021?START DATE OF MOST RECENT
     Route: 050
     Dates: start: 20210414
  12. CRESTOR [Concomitant]
     Active Substance: ROSUVASTATIN CALCIUM
     Indication: Hypercholesterolaemia
     Dosage: 20 MG/ML
     Route: 048
     Dates: start: 20100629
  13. GLIMEPIRIDE [Concomitant]
     Active Substance: GLIMEPIRIDE
     Indication: Type 2 diabetes mellitus
     Dosage: 4 MG/ML
     Route: 048
     Dates: start: 20110325
  14. LOSARTAN [Concomitant]
     Active Substance: LOSARTAN
     Dosage: KIDNEY PROTECTANT, 100 MG/ML
     Route: 048
     Dates: start: 20160426
  15. OFLOXACIN [Concomitant]
     Active Substance: OFLOXACIN
     Route: 047
     Dates: start: 20200820
  16. OFLOXACIN [Concomitant]
     Active Substance: OFLOXACIN
     Route: 047
     Dates: start: 20210420, end: 20210429
  17. OFLOXACIN [Concomitant]
     Active Substance: OFLOXACIN
     Route: 047
     Dates: start: 20210301, end: 20210722
  18. OFLOXACIN [Concomitant]
     Active Substance: OFLOXACIN
     Route: 047
     Dates: start: 20210501, end: 20210722
  19. PRED FORTE [Concomitant]
     Active Substance: PREDNISOLONE ACETATE
     Route: 047
     Dates: start: 20210420, end: 20210429
  20. PRED FORTE [Concomitant]
     Active Substance: PREDNISOLONE ACETATE
     Route: 047
     Dates: start: 20210501, end: 20210624

REACTIONS (2)
  - Conjunctival bleb [Recovered/Resolved]
  - Conjunctival retraction [Recovered/Resolved]

NARRATIVE: CASE EVENT DATE: 20210304
